FAERS Safety Report 13970720 (Version 1)
Quarter: 2017Q3

REPORT INFORMATION
  Report Type: Spontaneous
  Country: DE (occurrence: DE)
  Receive Date: 20170914
  Receipt Date: 20170914
  Transmission Date: 20171128
  Serious: Yes (Hospitalization)
  Sender: FDA-Public Use
  Company Number: DE-TEVA-804366GER

PATIENT
  Age: 76 Year
  Sex: Female

DRUGS (10)
  1. RISPERIDON [Interacting]
     Active Substance: RISPERIDONE
     Dates: start: 20140725
  2. TAVOR (LORAZEPAM) [Concomitant]
     Active Substance: LORAZEPAM
  3. RISPERIDON [Suspect]
     Active Substance: RISPERIDONE
     Dates: start: 20130826
  4. TRAZODON-NEURAXPHARM [Concomitant]
     Dates: start: 20140807
  5. TRAZODON-NEURAXPHARM [Concomitant]
     Dates: start: 20140707
  6. TRAZODON-NEURAXPHARM [Concomitant]
     Dates: start: 20140806
  7. VENLAFAXIN [Interacting]
     Active Substance: VENLAFAXINE HYDROCHLORIDE
     Dates: start: 20140124
  8. VENLAFAXIN [Interacting]
     Active Substance: VENLAFAXINE HYDROCHLORIDE
     Dates: start: 20140806
  9. RISPERIDON [Interacting]
     Active Substance: RISPERIDONE
     Dates: start: 20140707
  10. TRAZODON-NEURAXPHARM [Concomitant]
     Dates: start: 20140811

REACTIONS (2)
  - Pleurothotonus [Recovered/Resolved]
  - Drug interaction [Unknown]

NARRATIVE: CASE EVENT DATE: 20140811
